FAERS Safety Report 15966362 (Version 3)
Quarter: 2019Q1

REPORT INFORMATION
  Report Type: Spontaneous
  Country: IN (occurrence: IN)
  Receive Date: 20190215
  Receipt Date: 20190315
  Transmission Date: 20190418
  Serious: Yes (Hospitalization, Other)
  Sender: FDA-Public Use
  Company Number: IN-PFIZER INC-2019064872

PATIENT
  Sex: Female

DRUGS (9)
  1. PENTAZOCINE [Suspect]
     Active Substance: PENTAZOCINE
     Indication: ANAESTHESIA
     Dosage: 30 MG, SINGLE
     Route: 013
     Dates: start: 20180101
  2. PROMETHAZINE [Suspect]
     Active Substance: PROMETHAZINE\PROMETHAZINE HYDROCHLORIDE
     Indication: ANAESTHESIA
     Dosage: 25 MG, SINGLE
     Route: 013
     Dates: start: 20180101
  3. CLOPIDOGREL [Concomitant]
     Active Substance: CLOPIDOGREL BISULFATE
     Dosage: 75 MG, 1X/DAY
     Dates: start: 201801
  4. ATROPINE. [Suspect]
     Active Substance: ATROPINE
     Indication: ANAESTHESIA
     Dosage: 0.4 MG, SINGLE
     Route: 013
     Dates: start: 20180101
  5. LOW MOLECULAR WEIGHT HEPARIN SODIUM [Concomitant]
     Active Substance: HEPARIN SODIUM
     Dosage: 0.6 ML, 2X/DAY
     Route: 058
     Dates: start: 201801
  6. ACETYLSALICYLIC ACID [Concomitant]
     Active Substance: ASPIRIN
     Dosage: 75 MG, 1X/DAY
     Dates: start: 201801
  7. ALPROSTADIL. [Concomitant]
     Active Substance: ALPROSTADIL
     Dosage: 500 UG, 1X/DAY
     Dates: start: 201801
  8. ROSUVASTATIN. [Concomitant]
     Active Substance: ROSUVASTATIN
     Dosage: 10 MG, 1X/DAY
     Dates: start: 201801
  9. NIFEDIPINE. [Concomitant]
     Active Substance: NIFEDIPINE
     Dosage: 10 MG, 2X/DAY
     Dates: start: 201801

REACTIONS (2)
  - Gangrene [Unknown]
  - Incorrect route of product administration [Unknown]

NARRATIVE: CASE EVENT DATE: 201801
